FAERS Safety Report 16992559 (Version 1)
Quarter: 2019Q4

REPORT INFORMATION
  Report Type: Spontaneous
  Country: GB (occurrence: GB)
  Receive Date: 20191105
  Receipt Date: 20191105
  Transmission Date: 20200122
  Serious: Yes (Life-Threatening, Disabling, Other)
  Sender: FDA-Public Use
  Company Number: GB-ADVANZ PHARMA-201910001434

PATIENT

DRUGS (1)
  1. PREDNISOLONE. [Suspect]
     Active Substance: PREDNISOLONE
     Indication: GOUT
     Route: 048
     Dates: start: 20191005, end: 20191013

REACTIONS (8)
  - Arthralgia [Unknown]
  - Dizziness [Unknown]
  - Hypotension [Unknown]
  - Withdrawal syndrome [Unknown]
  - Hypertension [Unknown]
  - Nightmare [Unknown]
  - Feeling abnormal [Not Recovered/Not Resolved]
  - Suicidal ideation [Unknown]

NARRATIVE: CASE EVENT DATE: 20191012
